FAERS Safety Report 10290683 (Version 1)
Quarter: 2014Q3

REPORT INFORMATION
  Report Type: Spontaneous
  Country: US (occurrence: None)
  Receive Date: 20140708
  Receipt Date: 20140708
  Transmission Date: 20150326
  Serious: Yes (Death, Life-Threatening, Hospitalization)
  Sender: FDA-Public Use
  Company Number: None

PATIENT
  Age: 73 Year
  Sex: Female
  Weight: 61.24 kg

DRUGS (1)
  1. FLUOROURACIL. [Suspect]
     Active Substance: FLUOROURACIL
     Indication: COLORECTAL CANCER
     Dosage: 140 U TOTAL, 1.46/HR. 96 HRS OVER 96 HOURS X 1 INTO A VEIN
     Route: 042

REACTIONS (7)
  - Aphagia [None]
  - Fall [None]
  - Stomatitis [None]
  - Cardiac arrest [None]
  - Blood lactic acid increased [None]
  - Asthenia [None]
  - Dihydropyrimidine dehydrogenase deficiency [None]

NARRATIVE: CASE EVENT DATE: 20140702
